FAERS Safety Report 6531579-1 (Version None)
Quarter: 2010Q1

REPORT INFORMATION
  Report Type: 
  Country: None (occurrence: None)
  Receive Date: 20100107
  Receipt Date: 20100107
  Transmission Date: 20100710
  Serious: Yes (Hospitalization)
  Sender: FDA-Public Use
  Company Number: None

PATIENT
  Age: 81 Year
  Sex: Male

DRUGS (1)
  1. DIGOXIN [Suspect]
     Dosage: 0.25 MG ONCE PO
     Route: 048
     Dates: start: 20091119, end: 20091119

REACTIONS (2)
  - BRADYCARDIA [None]
  - CONVULSION [None]
